FAERS Safety Report 23716878 (Version 1)
Quarter: 2024Q2

REPORT INFORMATION
  Report Type: Spontaneous
  Country: US (occurrence: US)
  Receive Date: 20240408
  Receipt Date: 20240408
  Transmission Date: 20240715
  Serious: Yes (Other)
  Sender: FDA-Public Use
  Company Number: US-ABBVIE-5708164

PATIENT
  Sex: Female

DRUGS (1)
  1. HUMIRA [Suspect]
     Active Substance: ADALIMUMAB
     Indication: Inflammatory bowel disease
     Dosage: FORM STRENGTH: 80MG
     Route: 058

REACTIONS (4)
  - Surgery [Unknown]
  - Product quality issue [Not Recovered/Not Resolved]
  - Off label use [Not Recovered/Not Resolved]
  - Product administration interrupted [Not Recovered/Not Resolved]

NARRATIVE: CASE EVENT DATE: 20230101
